FAERS Safety Report 5512758-9 (Version None)
Quarter: 2007Q4

REPORT INFORMATION
  Report Type: 
  Country: None (occurrence: None)
  Receive Date: 20071108
  Receipt Date: 20071023
  Transmission Date: 20080405
  Serious: Yes (Hospitalization)
  Sender: FDA-Public Use
  Company Number: 8027650

PATIENT
  Age: 18 Year
  Sex: Female

DRUGS (6)
  1. KEPPRA [Suspect]
     Dosage: 750 MG 2/D
     Dates: start: 20060327
  2. AUGMENTIN [Suspect]
     Dates: start: 20060501
  3. KLONOPIN [Suspect]
     Dosage: 1.5 MG 2/D
  4. KLONOPIN [Suspect]
     Dosage: 0.25 MG 1/D
     Dates: start: 20050916
  5. KLONOPIN [Suspect]
     Dosage: 1.125 MG
     Dates: start: 20070327
  6. TEGRETOL [Suspect]
     Dosage: 850 MG
     Dates: start: 20070327

REACTIONS (35)
  - ADRENAL INSUFFICIENCY [None]
  - AGRANULOCYTOSIS [None]
  - ATELECTASIS [None]
  - CARDIAC FAILURE CONGESTIVE [None]
  - CATHETER RELATED COMPLICATION [None]
  - CEREBELLAR ATROPHY [None]
  - COGNITIVE DISORDER [None]
  - DIARRHOEA [None]
  - DISEASE RECURRENCE [None]
  - DRUG TOXICITY [None]
  - EAR PAIN [None]
  - ENCEPHALOPATHY [None]
  - FATIGUE [None]
  - GRAND MAL CONVULSION [None]
  - HYPOTENSION [None]
  - INFECTION [None]
  - IRRITABILITY [None]
  - LEFT VENTRICULAR FAILURE [None]
  - LUNG CONSOLIDATION [None]
  - LUNG INJURY [None]
  - MYOCLONUS [None]
  - OPPOSITIONAL DEFIANT DISORDER [None]
  - PANCYTOPENIA [None]
  - PHARYNGEAL DISORDER [None]
  - PHARYNGEAL ERYTHEMA [None]
  - PLEURAL EFFUSION [None]
  - PNEUMOTHORAX [None]
  - PRURITUS [None]
  - PULMONARY ARTERY DILATATION [None]
  - RASH [None]
  - SPINOCEREBELLAR ATAXIA [None]
  - SPLENOMEGALY [None]
  - STREPTOCOCCAL SEPSIS [None]
  - SWELLING [None]
  - TACHYCARDIA [None]
